FAERS Safety Report 22886475 (Version 4)
Quarter: 2024Q3

REPORT INFORMATION
  Report Type: Spontaneous
  Country: US (occurrence: US)
  Receive Date: 20230831
  Receipt Date: 20240913
  Transmission Date: 20241017
  Serious: Yes (Other)
  Sender: SANOFI AVENTIS
  Company Number: US-SANOFI-01743378

PATIENT
  Age: 59 Year
  Sex: Male

DRUGS (3)
  1. LANTUS [Suspect]
     Active Substance: INSULIN GLARGINE
     Indication: Type 2 diabetes mellitus
     Dosage: 25 UNITS IN THE MORNING AND 15 UNITS IN THE EVENING, BID
     Route: 065
     Dates: start: 2004
  2. LANTUS [Suspect]
     Active Substance: INSULIN GLARGINE
     Dosage: 30 U, BID
  3. HUMALOG [Concomitant]
     Active Substance: INSULIN LISPRO

REACTIONS (3)
  - Cataract [Unknown]
  - Visual impairment [Unknown]
  - Off label use [Unknown]
